FAERS Safety Report 5057967-0 (Version None)
Quarter: 2006Q3

REPORT INFORMATION
  Report Type: 
  Country: None (occurrence: None)
  Receive Date: 20060721
  Receipt Date: 20060425
  Transmission Date: 20061208
  Serious: No
  Sender: FDA-Public Use
  Company Number: US-GLAXOSMITHKLINE-A0603259A

PATIENT
  Age: 57 Year
  Sex: Female

DRUGS (7)
  1. AVANDIA [Suspect]
     Dosage: 6MG PER DAY
     Route: 048
     Dates: start: 20060407
  2. METFORMIN [Suspect]
     Dosage: 850MG TWICE PER DAY
     Route: 048
     Dates: start: 20060407
  3. VIVELLE-DOT [Concomitant]
  4. HUMALOG [Concomitant]
  5. HUMULIN N [Concomitant]
  6. LEVOXYL [Concomitant]
  7. NORTRIPTYLINE HCL [Concomitant]

REACTIONS (1)
  - DYSPEPSIA [None]
